FAERS Safety Report 21741014 (Version 2)
Quarter: 2022Q4

REPORT INFORMATION
  Report Type: Spontaneous
  Country: CH (occurrence: CH)
  Receive Date: 20221216
  Receipt Date: 20221220
  Transmission Date: 20230113
  Serious: Yes (Life-Threatening, Hospitalization, Other)
  Sender: FDA-Public Use
  Company Number: CH-SM-2022-20129

PATIENT
  Age: 46 Year
  Sex: Male

DRUGS (7)
  1. YERVOY [Suspect]
     Active Substance: IPILIMUMAB
     Indication: Malignant melanoma
     Route: 042
     Dates: start: 20220329, end: 20220704
  2. OPDIVO [Suspect]
     Active Substance: NIVOLUMAB
     Indication: Malignant melanoma
     Dosage: OPDIVO? (NIVOLUMAB) INTRAVEN?SE APPLIKATION VOM 29.03.2022 BIS AM 02.08.2022
     Route: 042
     Dates: start: 20220329, end: 20220802
  3. MEKINIST [Suspect]
     Active Substance: TRAMETINIB DIMETHYL SULFOXIDE
     Indication: Malignant melanoma
     Dosage: MEKINIST? (TRAMETINIB) 2 MG /TAG ORALE EINNAHME VOM 17.08.2022 BIS AM 30.08.2022
     Route: 048
     Dates: start: 20220817, end: 20220830
  4. MEKINIST [Suspect]
     Active Substance: TRAMETINIB DIMETHYL SULFOXIDE
     Route: 048
     Dates: start: 20220801
  5. TAFINLAR [Suspect]
     Active Substance: DABRAFENIB MESYLATE
     Indication: Malignant melanoma
     Dosage: TAFINLAR? (DABRAFENIB) 150 MG 2X/TAG ORALE EINNAHME VOM 17.08.2022 BIS AM 30.08.2022
     Route: 048
     Dates: start: 20220817, end: 20220830
  6. DAFALGAN [Concomitant]
     Active Substance: ACETAMINOPHEN
     Indication: Product used for unknown indication
     Dosage: DAFALGAN? (PARACETAMOL) 500 MG BEI BEDARF ; AS NECESSARY
     Route: 048
  7. IBUPROFEN [Concomitant]
     Active Substance: IBUPROFEN
     Indication: Product used for unknown indication
     Dosage: IRFEN? (IBUPROFEN) 400 MG BEI BEDARF ; AS NECESSARY
     Route: 048

REACTIONS (4)
  - Haemophagocytic lymphohistiocytosis [Recovering/Resolving]
  - Bicytopenia [Recovering/Resolving]
  - Liver disorder [Recovering/Resolving]
  - Disseminated intravascular coagulation [Recovering/Resolving]

NARRATIVE: CASE EVENT DATE: 20220901
